FAERS Safety Report 24197280 (Version 1)
Quarter: 2024Q3

REPORT INFORMATION
  Report Type: Spontaneous
  Country: US (occurrence: US)
  Receive Date: 20240810
  Receipt Date: 20240810
  Transmission Date: 20241016
  Serious: Yes (Other)
  Sender: DR REDDYS
  Company Number: US-DRL-USA-LIT/USA/24/0011445

PATIENT
  Age: 59 Year
  Sex: Male

DRUGS (2)
  1. PRASUGREL [Suspect]
     Active Substance: PRASUGREL
     Indication: Pulmonary vein stenosis
     Dosage: FOR SIX MONTHS
  2. APIXABAN [Concomitant]
     Active Substance: APIXABAN
     Indication: Pulmonary vein stenosis

REACTIONS (1)
  - Drug ineffective for unapproved indication [Unknown]
